FAERS Safety Report 11757128 (Version 1)
Quarter: 2015Q4

REPORT INFORMATION
  Report Type: Spontaneous
  Country: GR (occurrence: GR)
  Receive Date: 20151120
  Receipt Date: 20151120
  Transmission Date: 20160304
  Serious: Yes (Other)
  Sender: FDA-Public Use
  Company Number: GR-AMGEN-GRCSP2015102516

PATIENT
  Age: 36 Year
  Sex: Female
  Weight: 50 kg

DRUGS (9)
  1. PROCORALAN [Suspect]
     Active Substance: IVABRADINE
     Indication: ANGINA PECTORIS
     Dosage: 5 MG, BID
     Route: 048
     Dates: start: 20150826, end: 20150922
  2. INSULIN DEGLUDEC [Concomitant]
     Active Substance: INSULIN DEGLUDEC
     Dosage: DAILY DOSE UNSPECIFIED
  3. ESOMEPRAZOLE [Concomitant]
     Active Substance: ESOMEPRAZOLE
     Dosage: 20 MG, QD (DAILY)
     Dates: start: 20150901
  4. MEBEVERINE [Concomitant]
     Active Substance: MEBEVERINE
     Dosage: 400 MG, QD (DAILY)
     Dates: start: 20150901
  5. ALFACALCIDOL [Concomitant]
     Active Substance: ALFACALCIDOL
     Dosage: 0.5 MUG, QD (DAILY)
     Dates: start: 2011
  6. ACTRAPID [Concomitant]
     Active Substance: INSULIN HUMAN
     Dosage: DAILY DOSE UNSPECIFIED
  7. ACETYLSALICYLIC ACID [Concomitant]
     Active Substance: ASPIRIN
     Indication: ANTICOAGULANT THERAPY
     Dosage: 100 MG, QD (DAILY)
  8. PROCORALAN [Suspect]
     Active Substance: IVABRADINE
     Dosage: 7.5 MG, BID
     Route: 048
     Dates: start: 20150923
  9. DAPAGLIFLOZIN [Concomitant]
     Active Substance: DAPAGLIFLOZIN
     Indication: ANTICOAGULANT THERAPY
     Dosage: 5 MG, QD (DAILY)
     Dates: start: 20150820

REACTIONS (4)
  - Impaired driving ability [Not Recovered/Not Resolved]
  - Activities of daily living impaired [Not Recovered/Not Resolved]
  - Visual impairment [Not Recovered/Not Resolved]
  - Vision blurred [Not Recovered/Not Resolved]

NARRATIVE: CASE EVENT DATE: 20150915
